FAERS Safety Report 10707811 (Version 2)
Quarter: 2015Q1

REPORT INFORMATION
  Report Type: Spontaneous
  Country: CN (occurrence: CN)
  Receive Date: 20150113
  Receipt Date: 20150209
  Transmission Date: 20150721
  Serious: Yes (Other)
  Sender: FDA-Public Use
  Company Number: CN-GILEAD-2015-0130682

PATIENT
  Sex: Male

DRUGS (2)
  1. HEPSERA [Suspect]
     Active Substance: ADEFOVIR DIPIVOXIL
     Indication: HEPATIC CIRRHOSIS
     Dosage: 10 MG, QD
     Route: 048
  2. HEPSERA [Suspect]
     Active Substance: ADEFOVIR DIPIVOXIL
     Indication: HEPATIC CIRRHOSIS

REACTIONS (3)
  - Blood phosphorus decreased [Unknown]
  - Fracture [Recovered/Resolved]
  - Osteoporosis [Unknown]

NARRATIVE: CASE EVENT DATE: 2014
